FAERS Safety Report 16315009 (Version 1)
Quarter: 2019Q2

REPORT INFORMATION
  Report Type: Spontaneous
  Country: SI (occurrence: SI)
  Receive Date: 20190515
  Receipt Date: 20190515
  Transmission Date: 20190711
  Serious: Yes (Other)
  Sender: FDA-Public Use
  Company Number: SI-JNJFOC-20190516391

PATIENT
  Age: 66 Year
  Sex: Male
  Weight: 123 kg

DRUGS (7)
  1. EXFORGE HCT [Concomitant]
     Active Substance: AMLODIPINE BESYLATE\HYDROCHLOROTHIAZIDE\VALSARTAN
     Route: 065
  2. SORVASTA [Concomitant]
     Active Substance: ROSUVASTATIN CALCIUM
     Route: 065
  3. XARELTO [Suspect]
     Active Substance: RIVAROXABAN
     Indication: ATRIAL FIBRILLATION
     Route: 048
     Dates: start: 201810
  4. EDEMID [Concomitant]
     Active Substance: FUROSEMIDE
     Route: 065
  5. JARDIANCE [Concomitant]
     Active Substance: EMPAGLIFLOZIN
     Route: 065
  6. INSULIN [Concomitant]
     Active Substance: INSULIN NOS
     Indication: TYPE 2 DIABETES MELLITUS
     Dosage: UNK
     Route: 065
     Dates: start: 2013
  7. KAMIREN [Concomitant]
     Dosage: HS
     Route: 065

REACTIONS (8)
  - Gastrointestinal haemorrhage [Recovering/Resolving]
  - Haemoglobin decreased [Recovering/Resolving]
  - Peripheral swelling [Recovered/Resolved]
  - Renal impairment [Recovering/Resolving]
  - Weight increased [Recovered/Resolved]
  - Adenoma benign [Unknown]
  - Chronic kidney disease [Recovering/Resolving]
  - Colon dysplasia [Recovering/Resolving]
